FAERS Safety Report 9146878 (Version 1)
Quarter: 2013Q1

REPORT INFORMATION
  Report Type: Spontaneous
  Country: US (occurrence: US)
  Receive Date: 20130307
  Receipt Date: 20130307
  Transmission Date: 20140127
  Serious: No
  Sender: FDA-Public Use
  Company Number: US-009507513-1303USA003082

PATIENT
  Age: 33 Year
  Sex: Female

DRUGS (1)
  1. AFRIN [Suspect]
     Indication: PRODUCT USED FOR UNKNOWN INDICATION
     Dosage: UNK, ONCE
     Route: 045

REACTIONS (2)
  - Rhinalgia [Unknown]
  - Drug ineffective [Unknown]
